FAERS Safety Report 20034993 (Version 3)
Quarter: 2022Q1

REPORT INFORMATION
  Report Type: Spontaneous
  Country: JP (occurrence: JP)
  Receive Date: 20211104
  Receipt Date: 20220307
  Transmission Date: 20220423
  Serious: Yes (Life-Threatening, Hospitalization, Other)
  Sender: FDA-Public Use
  Company Number: JP-SA-SAC20211102001005

PATIENT
  Age: 74 Year
  Sex: Female

DRUGS (10)
  1. OXALIPLATIN [Suspect]
     Active Substance: OXALIPLATIN
     Indication: Pancreatic carcinoma
     Dosage: 65 MG/M2  ONCE IN 2WEEKS
     Route: 041
  2. OXALIPLATIN [Suspect]
     Active Substance: OXALIPLATIN
     Dosage: REDUCED TO 80% OF THE INITIAL DOSE
     Route: 041
  3. OXALIPLATIN [Suspect]
     Active Substance: OXALIPLATIN
     Dosage: REDUCED TO 60% OF THE INITIAL DOSE BY THE NINTH CYCLE
     Route: 065
  4. FLUOROURACIL [Suspect]
     Active Substance: FLUOROURACIL
     Indication: Pancreatic carcinoma
     Dosage: CONTINUOUS INFUSION OF 2400 MG/M2 OVER A 46-HOUR PERIOD ONCE IN 2 WEEKS
     Route: 041
  5. FLUOROURACIL [Suspect]
     Active Substance: FLUOROURACIL
     Indication: Cystadenocarcinoma pancreas
     Dosage: OVER A 46-HOUR PERIOD, EVERY 2 WEEKS
  6. LEVOLEUCOVORIN CALCIUM [Suspect]
     Active Substance: LEVOLEUCOVORIN CALCIUM
     Indication: Pancreatic carcinoma
     Dosage: 300 MG/M2 ONCE IN 2WEEKS
     Route: 041
  7. IRINOTECAN [Suspect]
     Active Substance: IRINOTECAN
     Indication: Pancreatic carcinoma
     Dosage: 120 MG/M2 ONCE IN 2WEEKS
     Route: 041
  8. IRINOTECAN [Suspect]
     Active Substance: IRINOTECAN
     Indication: Cystadenocarcinoma pancreas
     Dosage: REDUCED TO 80% OF THE INITIAL DOSE
     Route: 041
  9. IRINOTECAN [Suspect]
     Active Substance: IRINOTECAN
     Dosage: REDUCED TO 60% OF THE INITIAL DOSE BY THE NINTH CYCLE
     Route: 065
  10. IRINOTECAN [Suspect]
     Active Substance: IRINOTECAN
     Dosage: 80% OF 120 MG/M^2

REACTIONS (5)
  - Cardiac failure [Unknown]
  - Herpes zoster [Unknown]
  - Peripheral sensory neuropathy [Unknown]
  - Fatigue [Unknown]
  - Therapy partial responder [Unknown]
